FAERS Safety Report 5299649-6 (Version None)
Quarter: 2007Q2

REPORT INFORMATION
  Report Type: 
  Country: None (occurrence: None)
  Receive Date: 20070417
  Receipt Date: 20070402
  Transmission Date: 20071010
  Serious: Yes (Other)
  Sender: FDA-Public Use
  Company Number: US-AMGEN-US217776

PATIENT
  Sex: Male

DRUGS (2)
  1. EPOGEN [Suspect]
     Indication: DIALYSIS
     Route: 042
     Dates: start: 20050101
  2. ORAL ANTICOAGULANT NOS [Concomitant]

REACTIONS (3)
  - APLASIA PURE RED CELL [None]
  - STAPHYLOCOCCAL BACTERAEMIA [None]
  - VITAMIN D DEFICIENCY [None]
